FAERS Safety Report 25071581 (Version 1)
Quarter: 2025Q1

REPORT INFORMATION
  Report Type: Report from Study
  Country: US (occurrence: US)
  Receive Date: 20250313
  Receipt Date: 20250313
  Transmission Date: 20250408
  Serious: Yes (Other)
  Sender: ABBVIE
  Company Number: US-ABBVIE-6085162

PATIENT
  Age: 43 Year
  Sex: Female
  Weight: 82 kg

DRUGS (10)
  1. SKYRIZI [Suspect]
     Active Substance: RISANKIZUMAB-RZAA
     Indication: Crohn^s disease
     Route: 042
     Dates: start: 20241212, end: 20241212
  2. SKYRIZI [Suspect]
     Active Substance: RISANKIZUMAB-RZAA
     Indication: Crohn^s disease
     Route: 042
     Dates: start: 20250120, end: 20250120
  3. SKYRIZI [Suspect]
     Active Substance: RISANKIZUMAB-RZAA
     Indication: Crohn^s disease
     Route: 042
     Dates: start: 20250212, end: 20250212
  4. COVID-19 vaccine [Concomitant]
     Indication: Immunisation
  5. COLLAGEN [Concomitant]
     Active Substance: COLLAGEN
     Indication: Product used for unknown indication
     Dosage: 500 MG,?8000 MCG,?50 MG
  6. COLESTID [Concomitant]
     Active Substance: COLESTIPOL HYDROCHLORIDE
     Indication: Product used for unknown indication
     Route: 048
     Dates: start: 20230502
  7. VITAMIN D2 [Concomitant]
     Active Substance: ERGOCALCIFEROL
     Indication: Product used for unknown indication
     Route: 048
     Dates: start: 20240724
  8. NORTREL [Concomitant]
     Active Substance: ETHINYL ESTRADIOL\NORETHINDRONE
     Indication: Product used for unknown indication
  9. Fat burner [Concomitant]
     Indication: Product used for unknown indication
  10. VITAMIN B12 [Concomitant]
     Active Substance: CYANOCOBALAMIN
     Indication: Product used for unknown indication
     Dosage: 1000 MCG/ML
     Route: 058
     Dates: start: 20231115

REACTIONS (18)
  - Cholecystectomy [Unknown]
  - Nasopharyngitis [Recovered/Resolved]
  - Flatulence [Not Recovered/Not Resolved]
  - Crohn^s disease [Not Recovered/Not Resolved]
  - Respiratory tract congestion [Recovered/Resolved]
  - Blood alkaline phosphatase decreased [Unknown]
  - Haemorrhoids [Unknown]
  - Defaecation urgency [Unknown]
  - Anal fissure [Unknown]
  - Constipation [Unknown]
  - Small intestinal resection [Unknown]
  - Diarrhoea [Unknown]
  - Abdominal pain [Not Recovered/Not Resolved]
  - Abdominal distension [Not Recovered/Not Resolved]
  - Rectal haemorrhage [Unknown]
  - Small intestine operation [Unknown]
  - Spinal operation [Unknown]
  - Tonsillectomy [Unknown]

NARRATIVE: CASE EVENT DATE: 20241220
